FAERS Safety Report 15956577 (Version 1)
Quarter: 2019Q1

REPORT INFORMATION
  Report Type: Spontaneous
  Country: US (occurrence: US)
  Receive Date: 20190213
  Receipt Date: 20190213
  Transmission Date: 20190417
  Serious: Yes (Hospitalization)
  Sender: FDA-Public Use
  Company Number: None

PATIENT
  Age: 63 Year
  Sex: Female
  Weight: 56.1 kg

DRUGS (2)
  1. FULPHILA [Suspect]
     Active Substance: PEGFILGRASTIM-JMDB
     Indication: BONE MARROW FAILURE
     Dosage: 6 MG 24 HR POST CHEMO; SUBCUTANEOUS?
     Route: 058
     Dates: start: 20190212, end: 20190212
  2. FULPHILA [Suspect]
     Active Substance: PEGFILGRASTIM-JMDB
     Indication: NEUTROPENIA
     Dosage: 6 MG 24 HR POST CHEMO; SUBCUTANEOUS?
     Route: 058
     Dates: start: 20190212, end: 20190212

REACTIONS (3)
  - Urinary incontinence [None]
  - Unresponsive to stimuli [None]
  - Seizure [None]

NARRATIVE: CASE EVENT DATE: 20190212
